FAERS Safety Report 18152056 (Version 1)
Quarter: 2020Q3

REPORT INFORMATION
  Report Type: Spontaneous
  Country: GR (occurrence: GR)
  Receive Date: 20200814
  Receipt Date: 20200814
  Transmission Date: 20201103
  Serious: Yes (Death, Other)
  Sender: FDA-Public Use
  Company Number: GR-PFIZER INC-2020309450

PATIENT
  Age: 70 Year
  Sex: Female
  Weight: 62 kg

DRUGS (16)
  1. MEDROL [Concomitant]
     Active Substance: METHYLPREDNISOLONE
     Dosage: 4 MG
     Route: 048
     Dates: start: 20200612
  2. TRAMETINIB [Concomitant]
     Active Substance: TRAMETINIB
     Dosage: 1 MG
     Route: 048
     Dates: start: 20200708, end: 20200712
  3. SOLU?MEDROL [Suspect]
     Active Substance: METHYLPREDNISOLONE SODIUM SUCCINATE
     Dosage: UNK
     Dates: start: 202007, end: 202007
  4. VONCON [Suspect]
     Active Substance: VANCOMYCIN HYDROCHLORIDE
     Dosage: UNK
     Dates: start: 202007, end: 202007
  5. CUBICIN [Suspect]
     Active Substance: DAPTOMYCIN
     Indication: SEPTIC SHOCK
     Dosage: UNK
     Dates: start: 202007, end: 202007
  6. CLEXANE T [Concomitant]
     Active Substance: ENOXAPARIN SODIUM
     Dosage: 0.4 MG
     Route: 058
     Dates: start: 20200228
  7. FENTADUR [Concomitant]
     Dosage: 25 UG
     Route: 062
     Dates: start: 20200504
  8. LOSECTIL [OMEPRAZOLE] [Concomitant]
     Dosage: 20 MG
     Route: 048
     Dates: start: 20200228
  9. LYRICA [Concomitant]
     Active Substance: PREGABALIN
     Dosage: 50?75 MG
     Route: 048
     Dates: start: 20200504
  10. APROVEL [Concomitant]
     Active Substance: IRBESARTAN
     Dosage: 150 MG
     Route: 048
     Dates: start: 20181201
  11. TAZOCIN [Suspect]
     Active Substance: PIPERACILLIN SODIUM\TAZOBACTAM SODIUM
     Dosage: UNK
     Dates: start: 202007, end: 202007
  12. MEROPENEM. [Suspect]
     Active Substance: MEROPENEM
     Dosage: UNK
     Dates: start: 202007, end: 202007
  13. DABRAFENIB [Concomitant]
     Active Substance: DABRAFENIB
     Dosage: 75 MG
     Route: 048
     Dates: start: 20200708, end: 20200712
  14. DEPON [Concomitant]
     Active Substance: ACETAMINOPHEN
     Dosage: 500 MG
     Route: 048
     Dates: start: 20200330
  15. T4 [Concomitant]
     Active Substance: LEVOTHYROXINE
     Dosage: 62 UG
     Route: 048
     Dates: start: 201703
  16. XOZAL [Concomitant]
     Active Substance: LEVOCETIRIZINE
     Dosage: 5 MG
     Route: 048
     Dates: start: 20200401

REACTIONS (1)
  - Septic shock [Fatal]

NARRATIVE: CASE EVENT DATE: 20200716
